FAERS Safety Report 14503942 (Version 1)
Quarter: 2018Q1

REPORT INFORMATION
  Report Type: Spontaneous
  Country: US (occurrence: US)
  Receive Date: 20180208
  Receipt Date: 20180208
  Transmission Date: 20180509
  Serious: No
  Sender: FDA-Public Use
  Company Number: US-JNJFOC-20180138044

PATIENT
  Age: 80 Year
  Sex: Male
  Weight: 105 kg

DRUGS (14)
  1. CARVEDILOL. [Concomitant]
     Active Substance: CARVEDILOL
  2. FLONASE [Concomitant]
     Active Substance: FLUTICASONE PROPIONATE
  3. TYLENOL [Concomitant]
     Active Substance: ACETAMINOPHEN
  4. LASIX [Concomitant]
     Active Substance: FUROSEMIDE
  5. CLARITIN [Concomitant]
     Active Substance: LORATADINE
  6. ZOFRAN [Concomitant]
     Active Substance: ONDANSETRON HYDROCHLORIDE
  7. SYNTHROID [Concomitant]
     Active Substance: LEVOTHYROXINE SODIUM
  8. VITAMIN B3 [Concomitant]
     Active Substance: NIACIN
  9. IMBRUVICA [Suspect]
     Active Substance: IBRUTINIB
     Indication: B-CELL SMALL LYMPHOCYTIC LYMPHOMA
     Route: 048
     Dates: start: 20171229
  10. CALCIUM PLUS VITAMIN D3 [Concomitant]
  11. METAMUCIL [Concomitant]
     Active Substance: PLANTAGO SEED
  12. ELIQUIS [Concomitant]
     Active Substance: APIXABAN
  13. MULTIVITAMINS [Concomitant]
     Active Substance: VITAMINS
  14. GLIPIZIDE XL [Concomitant]
     Active Substance: GLIPIZIDE

REACTIONS (1)
  - Dyspepsia [Not Recovered/Not Resolved]

NARRATIVE: CASE EVENT DATE: 201712
